FAERS Safety Report 21057643 (Version 1)
Quarter: 2022Q3

REPORT INFORMATION
  Report Type: Spontaneous
  Country: HU (occurrence: HU)
  Receive Date: 20220708
  Receipt Date: 20220708
  Transmission Date: 20221027
  Serious: Yes (Other)
  Sender: FDA-Public Use
  Company Number: HU-SUN PHARMACEUTICAL INDUSTRIES LTD-2022R1-343393

PATIENT
  Age: 47 Year
  Sex: Female

DRUGS (2)
  1. CARBOPLATIN [Suspect]
     Active Substance: CARBOPLATIN
     Indication: Chemotherapy
     Dosage: 150 MILLIGRAM/SQ. METER/ EVERY 4 WEEK
     Route: 065
     Dates: start: 202006
  2. ETOPOSIDE [Suspect]
     Active Substance: ETOPOSIDE
     Indication: Chemotherapy
     Dosage: UNK/ EVERY 4 WEEKS
     Route: 042
     Dates: start: 202006

REACTIONS (5)
  - Disease progression [Unknown]
  - Superior vena cava syndrome [Recovering/Resolving]
  - Cardiac tamponade [Recovering/Resolving]
  - Dyspnoea [Recovering/Resolving]
  - Asphyxia [Recovering/Resolving]
